FAERS Safety Report 9525446 (Version 1)
Quarter: 2013Q1

REPORT INFORMATION
  Report Type: Spontaneous
  Country: US (occurrence: None)
  Receive Date: 20130305
  Receipt Date: 20130305
  Transmission Date: 20140127
  Serious: Yes (Hospitalization)
  Sender: FDA-Public Use
  Company Number: 163-21880-12012762

PATIENT
  Age: 66 Year
  Sex: Male
  Weight: 83.46 kg

DRUGS (13)
  1. REVLIMID [Suspect]
     Indication: PLASMA CELL MYELOMA
     Dosage: 5 MG, 1 IN 1 D, PO
     Route: 048
     Dates: start: 20110405, end: 20120118
  2. ACIDOPHILIS (LACTOBACILLUS ACIDOPHILUS) (UNKNOWN) [Concomitant]
  3. NEXIUM (ESOMEPRAZOLE) (UNKNOWN)? [Concomitant]
  4. VITAMIN B1 (THIAMINE HYDROCHLORIDE) (UNKNOWN) [Concomitant]
  5. ALLOPURINOL (ALLOPURINOL) (UNKNOWN) [Concomitant]
  6. VITAMIN D3 (COLECALCIFEROL) (UNKNOWN) [Concomitant]
  7. FOLBIC (HEPAGRISEVIT FORTE-N TABLET) (UNKNOWN) [Concomitant]
  8. VITAMIN E (TOCOPHEROL) (UNKNOWN) [Concomitant]
  9. MAGNESIUM OXIDE (MAGNESIUM OXIDE) (UNKNOWN) [Concomitant]
  10. MICARDIS (TELMISARTAN) (UNKNOWN) [Concomitant]
  11. MVI (MVI) (UNKNOWN) [Concomitant]
  12. PERCOCET (OXYCOCET) (UNKNOWN) [Concomitant]
  13. ACYCLOVIR (ACICLOVIR) (UNKNOWN) [Concomitant]

REACTIONS (6)
  - Dehydration [None]
  - Blood calcium decreased [None]
  - Blood potassium decreased [None]
  - Diarrhoea [None]
  - White blood cell count decreased [None]
  - Red blood cell count decreased [None]
